FAERS Safety Report 8811975 (Version 1)
Quarter: 2012Q4

REPORT INFORMATION
  Report Type: Spontaneous
  Country: CH (occurrence: None)
  Receive Date: 20120924
  Receipt Date: 20120924
  Transmission Date: 20130627
  Serious: Yes (Death, Congenital Anomaly, Other)
  Sender: FDA-Public Use
  Company Number: DSA_59129_2012

PATIENT

DRUGS (1)
  1. ENALAPRIL [Suspect]
     Indication: HYPERTENSION
     Dosage: DF

REACTIONS (11)
  - Hypocalciuria [None]
  - Oligohydramnios [None]
  - Renal failure [None]
  - Dialysis [None]
  - Hypotension [None]
  - Pulmonary hypoplasia [None]
  - Acute respiratory distress syndrome [None]
  - Limb malformation [None]
  - Foetal growth restriction [None]
  - Abortion spontaneous [None]
  - Exposure during pregnancy [None]
